FAERS Safety Report 7079094-3 (Version None)
Quarter: 2010Q4

REPORT INFORMATION
  Report Type: 
  Country: None (occurrence: None)
  Receive Date: 20101102
  Receipt Date: 20101022
  Transmission Date: 20110411
  Serious: Yes (Other)
  Sender: FDA-Public Use
  Company Number: JP-NOVOPROD-316222

PATIENT
  Age: 45 Year
  Sex: Male
  Weight: 66 kg

DRUGS (8)
  1. VICTOZA [Suspect]
     Indication: TYPE 2 DIABETES MELLITUS
     Dosage: 0.3  MG, QD
     Route: 058
     Dates: start: 20100705, end: 20100826
  2. VICTOZA [Suspect]
     Dosage: 0.6 MG/DAY
     Dates: start: 20100826
  3. AMARYL [Concomitant]
     Indication: TYPE 2 DIABETES MELLITUS
     Dosage: 1 MG, QD
     Route: 048
     Dates: start: 20090820
  4. KINEDAK [Concomitant]
     Indication: NEUROSIS
     Dosage: 150 MG, QD
     Route: 048
     Dates: start: 20090820
  5. METHYCOBAL                         /00324901/ [Concomitant]
     Dosage: 1500 UG, QD
     Route: 048
     Dates: start: 20090820
  6. MEXITIL [Concomitant]
     Dosage: 300 MG, QD
     Route: 048
     Dates: start: 20090917
  7. LOXONIN                            /00890702/ [Concomitant]
     Dosage: 60 MG, QD
     Route: 048
     Dates: start: 20091008
  8. GASTER                             /00706001/ [Concomitant]
     Dosage: 10 MG, QD
     Route: 048
     Dates: start: 20091008

REACTIONS (2)
  - CONSTIPATION [None]
  - RETINOPATHY HAEMORRHAGIC [None]
